FAERS Safety Report 10441076 (Version 1)
Quarter: 2014Q3

REPORT INFORMATION
  Report Type: Spontaneous
  Country: MT (occurrence: None)
  Receive Date: 20140908
  Receipt Date: 20140908
  Transmission Date: 20150326
  Serious: Yes (Other)
  Sender: FDA-Public Use
  Company Number: None

PATIENT
  Age: 29 Year
  Sex: Male
  Weight: 85 kg

DRUGS (7)
  1. FOLIC ACID. [Concomitant]
     Active Substance: FOLIC ACID
  2. VITAMIN D [Concomitant]
     Active Substance: CHOLECALCIFEROL
  3. SELENIUM [Concomitant]
     Active Substance: SELENIUM
  4. PREGNYL [Concomitant]
     Active Substance: CHORIOGONADOTROPIN ALFA
  5. ZINC [Concomitant]
     Active Substance: ZINC\ZINC CHLORIDE
  6. VITAMIN B [Concomitant]
     Active Substance: VITAMIN B
  7. GONAL-F [Suspect]
     Active Substance: FOLLITROPIN
     Indication: SPERM CONCENTRATION DECREASED
     Route: 030
     Dates: start: 20140526, end: 20140902

REACTIONS (2)
  - Sperm concentration decreased [None]
  - Semen volume decreased [None]

NARRATIVE: CASE EVENT DATE: 20140906
